FAERS Safety Report 13002110 (Version 2)
Quarter: 2017Q1

REPORT INFORMATION
  Report Type: Spontaneous
  Country: US (occurrence: US)
  Receive Date: 20161206
  Receipt Date: 20170214
  Transmission Date: 20170428
  Serious: Yes (Other)
  Sender: FDA-Public Use
  Company Number: US-009507513-1611USA010108

PATIENT
  Age: 25 Year
  Sex: Female
  Weight: 68.03 kg

DRUGS (1)
  1. NEXPLANON [Suspect]
     Active Substance: ETONOGESTREL
     Indication: PRODUCT USED FOR UNKNOWN INDICATION
     Dosage: 1 ROD EVERY 3 YEARS, RIGHT ARM
     Route: 059
     Dates: start: 20131118, end: 20161115

REACTIONS (5)
  - Device difficult to use [Recovered/Resolved]
  - Device breakage [Recovered/Resolved]
  - Fibrosis [Unknown]
  - Implant site pruritus [Not Recovered/Not Resolved]
  - Keloid scar [Unknown]

NARRATIVE: CASE EVENT DATE: 2013
